FAERS Safety Report 5739331-1 (Version None)
Quarter: 2008Q2

REPORT INFORMATION
  Report Type: 
  Country: None (occurrence: None)
  Receive Date: 20080515
  Receipt Date: 20080205
  Transmission Date: 20081010
  Serious: Yes (Other)
  Sender: FDA-Public Use
  Company Number: CH-PFIZER INC-2008031382

PATIENT
  Age: 43 Year
  Sex: Male

DRUGS (1)
  1. SORTIS [Suspect]

REACTIONS (1)
  - THROMBOCYTHAEMIA [None]
